FAERS Safety Report 5734720-3 (Version None)
Quarter: 2008Q2

REPORT INFORMATION
  Report Type: 
  Country: None (occurrence: None)
  Receive Date: 20080501
  Receipt Date: 20080331
  Transmission Date: 20081010
  Serious: Yes (Other)
  Sender: FDA-Public Use
  Company Number: 169405USA

PATIENT
  Age: 76 Year
  Sex: Female
  Weight: 63.05 kg

DRUGS (2)
  1. ZOLPIDEM TARTRATE [Suspect]
     Indication: SLEEP DISORDER
     Dosage: (10 MG,AS REQUIRED),ORAL
     Route: 048
     Dates: start: 20080118, end: 20080313
  2. ATENOLOL [Concomitant]

REACTIONS (1)
  - AMNESIA [None]
